FAERS Safety Report 5127525-8 (Version None)
Quarter: 2006Q4

REPORT INFORMATION
  Report Type: 
  Country: None (occurrence: None)
  Receive Date: 20061010
  Receipt Date: 20060927
  Transmission Date: 20070319
  Serious: Yes (Disabling)
  Sender: FDA-Public Use
  Company Number: 2006118016

PATIENT
  Age: 43 Year
  Sex: 0

DRUGS (8)
  1. LINEZOLID [Suspect]
     Indication: OSTEOMYELITIS
     Dosage: 600 MG, ORAL
     Route: 048
     Dates: start: 20060807, end: 20060830
  2. PRISTINAMYCIN                         (PRISTINAMYCIN) [Suspect]
     Indication: OSTEOMYELITIS
     Dosage: 1 GRAM, ORAL
     Route: 048
     Dates: start: 20060831
  3. CIPROFLOXACIN [Concomitant]
  4. CODEINE PHOSPHATE                     (CODEINE PHOSPHATE) [Concomitant]
  5. DALTEPARIN SODIUM [Concomitant]
  6. MEROPENEM                     (MEROPENEM) [Concomitant]
  7. ACETAMINOPHEN [Concomitant]
  8. VANCOMYCIN [Concomitant]

REACTIONS (1)
  - CATARACT [None]
